FAERS Safety Report 17285405 (Version 1)
Quarter: 2020Q1

REPORT INFORMATION
  Report Type: Spontaneous
  Country: US (occurrence: US)
  Receive Date: 20200117
  Receipt Date: 20200117
  Transmission Date: 20200409
  Serious: No
  Sender: FDA-Public Use
  Company Number: US-VERTEX PHARMACEUTICALS-2020-000367

PATIENT
  Age: 64 Year
  Sex: Male

DRUGS (12)
  1. CREON [Concomitant]
     Active Substance: PANCRELIPASE AMYLASE\PANCRELIPASE LIPASE\PANCRELIPASE PROTEASE
  2. PROPRANOLOL HCL [Concomitant]
     Active Substance: PROPRANOLOL HYDROCHLORIDE
  3. TOBI PODHALER [Concomitant]
     Active Substance: TOBRAMYCIN
  4. CALCIUM + VITAMIN D [CALCIUM;COLECALCIFEROL] [Concomitant]
  5. ALBUTEROL SULFATE. [Concomitant]
     Active Substance: ALBUTEROL SULFATE
  6. FLOVENT HFA [Concomitant]
     Active Substance: FLUTICASONE PROPIONATE
  7. PROVENTIL HFA [SALBUTAMOL] [Concomitant]
  8. SODIUM CHLORIDE. [Concomitant]
     Active Substance: SODIUM CHLORIDE
  9. TRIKAFTA [Suspect]
     Active Substance: ELEXACAFTOR\IVACAFTOR\TEZACAFTOR
     Indication: CYSTIC FIBROSIS
     Dosage: 2 TABS (100 MG ELEXACAFTOR/50 MG TEZACAFTOR/ 75 MG IVACAFTOR) AM AND 1 TAB (150 MG IVACAFTOR) PM
     Route: 048
     Dates: start: 201912
  10. FLONASE [Concomitant]
     Active Substance: FLUTICASONE PROPIONATE
  11. PULMOZYME [Concomitant]
     Active Substance: DORNASE ALFA
  12. VITAMIN D [COLECALCIFEROL] [Concomitant]
     Active Substance: CHOLECALCIFEROL

REACTIONS (1)
  - Productive cough [Recovered/Resolved]

NARRATIVE: CASE EVENT DATE: 201912
